FAERS Safety Report 8988971 (Version 1)
Quarter: 2012Q4

REPORT INFORMATION
  Report Type: 
  Country: US (occurrence: US)
  Receive Date: 20121227
  Receipt Date: 20121227
  Transmission Date: 20130627
  Serious: Yes (Other)
  Sender: FDA-Public Use
  Company Number: US-PFIZER INC-2012328348

PATIENT
  Age: 51 Year
  Sex: Female

DRUGS (1)
  1. NORVASC [Suspect]
     Dosage: 10 mg, 1x/day (1 daily)

REACTIONS (3)
  - Breast cancer [Unknown]
  - Meningioma [Unknown]
  - Impaired fasting glucose [Unknown]
